FAERS Safety Report 4434735-1 (Version None)
Quarter: 2004Q3

REPORT INFORMATION
  Report Type: 
  Country: None (occurrence: None)
  Receive Date: 20040827
  Receipt Date: 20040616
  Transmission Date: 20050211
  Serious: No
  Sender: FDA-Public Use
  Company Number: US-BRISTOL-MYERS SQUIBB COMPANY-12617353

PATIENT
  Age: 55 Year
  Sex: Male

DRUGS (4)
  1. DEFINITY [Suspect]
     Route: 040
  2. LOMOTIL [Concomitant]
  3. VIOXX [Concomitant]
  4. SULFASALAZINE [Concomitant]

REACTIONS (1)
  - RASH [None]
